FAERS Safety Report 23372150 (Version 2)
Quarter: 2024Q1

REPORT INFORMATION
  Report Type: Spontaneous
  Country: US (occurrence: US)
  Receive Date: 20240105
  Receipt Date: 20240109
  Transmission Date: 20240410
  Serious: No
  Sender: FDA-Public Use
  Company Number: US-PFIZER INC-202400001352

PATIENT

DRUGS (1)
  1. CIPROFLOXACIN [Suspect]
     Active Substance: CIPROFLOXACIN
     Indication: Bacterial infection
     Dosage: UNK
     Dates: start: 202312, end: 202312

REACTIONS (3)
  - Urticaria [Not Recovered/Not Resolved]
  - Nervousness [Unknown]
  - Confusional state [Unknown]

NARRATIVE: CASE EVENT DATE: 20231201
